FAERS Safety Report 5300373-1 (Version None)
Quarter: 2007Q2

REPORT INFORMATION
  Report Type: 
  Country: None (occurrence: None)
  Receive Date: 20070413
  Receipt Date: 20070413
  Transmission Date: 20071010
  Serious: Yes (Death)
  Sender: FDA-Public Use
  Company Number: None

PATIENT
  Age: 33 Year
  Sex: Male
  Weight: 101.6057 kg

DRUGS (8)
  1. METHADONE HCL [Suspect]
     Indication: DRUG DEPENDENCE
     Dosage: APPROX 80 MG  DAILY  PO
     Route: 048
     Dates: start: 20060105, end: 20060107
  2. METHADONE HCL [Suspect]
     Indication: PAIN MANAGEMENT
     Dosage: APPROX 80 MG  DAILY  PO
     Route: 048
     Dates: start: 20060105, end: 20060107
  3. KLONOPIN [Concomitant]
  4. HYDROXYZINE [Concomitant]
  5. CYMBALTA [Concomitant]
  6. NORTRYPTLINE [Concomitant]
  7. HYDROCODONE [Concomitant]
  8. FLEXERIL [Concomitant]

REACTIONS (2)
  - DRUG DEPENDENCE [None]
  - UNRESPONSIVE TO STIMULI [None]
